FAERS Safety Report 24068970 (Version 1)
Quarter: 2024Q3

REPORT INFORMATION
  Report Type: Report from Study
  Country: US (occurrence: US)
  Receive Date: 20240710
  Receipt Date: 20240710
  Transmission Date: 20241017
  Serious: No
  Sender: ROCHE
  Company Number: US-ROCHE-3448170

PATIENT
  Age: 52 Year
  Sex: Female

DRUGS (4)
  1. PHESGO [Suspect]
     Active Substance: HYALURONIDASE-ZZXF\PERTUZUMAB\TRASTUZUMAB
     Indication: Breast cancer female
     Route: 042
  2. PHESGO [Suspect]
     Active Substance: HYALURONIDASE-ZZXF\PERTUZUMAB\TRASTUZUMAB
     Indication: Cardiac disorder
  3. PERJETA [Suspect]
     Active Substance: PERTUZUMAB
     Indication: Product used for unknown indication
     Dosage: DATE OF SERVICE: 07/OCT/2022, 28/OCT/2022, 18/NOV/2022, 09/DEC/2022, 30/DEC/2022, 20/JAN/2023, 10/FE
     Route: 065
  4. HERCEPTIN [Suspect]
     Active Substance: TRASTUZUMAB
     Indication: Product used for unknown indication
     Dosage: DATE OF SERVICE: 07/OCT/2022, 28/OCT/2022, 18/NOV/2022, 09/DEC/2022, 30/DEC/2022, 20/JAN/2023, 10/FE
     Route: 065

REACTIONS (2)
  - Off label use [Unknown]
  - No adverse event [Unknown]
